FAERS Safety Report 9596510 (Version 2)
Quarter: 2013Q4

REPORT INFORMATION
  Report Type: Spontaneous
  Country: US (occurrence: US)
  Receive Date: 20131004
  Receipt Date: 20131004
  Transmission Date: 20140711
  Serious: Yes (Hospitalization)
  Sender: FDA-Public Use
  Company Number: US-DYAX CORP.-2011DX000029

PATIENT
  Age: 41 Year
  Sex: Female

DRUGS (29)
  1. KALBITOR [Suspect]
     Indication: HEREDITARY ANGIOEDEMA
     Route: 058
     Dates: start: 20110606, end: 20110606
  2. KALBITOR [Suspect]
     Route: 058
     Dates: start: 20110607, end: 20110607
  3. CINRYZE [Suspect]
     Indication: HEREDITARY ANGIOEDEMA
     Dosage: DRUG ROUTE: INTRAVENOUS
     Route: 042
     Dates: start: 20110607, end: 20110607
  4. DILAUDID [Suspect]
     Indication: PAIN
     Route: 042
     Dates: start: 20110606, end: 20110606
  5. DILAUDID [Suspect]
     Route: 042
     Dates: start: 20110607, end: 20110607
  6. DILAUDID [Suspect]
     Route: 042
     Dates: start: 20110607, end: 20110607
  7. DILAUDID [Suspect]
     Route: 042
     Dates: start: 20110607, end: 20110607
  8. ZOFRAN [Suspect]
     Indication: NAUSEA
     Route: 042
     Dates: start: 20110606, end: 20110606
  9. ZOFRAN [Suspect]
     Route: 042
     Dates: start: 20110607, end: 20110607
  10. ALUMINUM HYDROXIDE\DIMETHICONE\MAGNESIUM HYDROXIDE [Concomitant]
     Indication: NAUSEA
     Route: 048
     Dates: start: 20110606, end: 20110607
  11. ASTEPRO [Concomitant]
     Indication: PRODUCT USED FOR UNKNOWN INDICATION
     Route: 045
  12. WELLBUTRIN [Concomitant]
     Indication: PRODUCT USED FOR UNKNOWN INDICATION
     Route: 048
  13. ZYRTEC [Concomitant]
     Indication: PRODUCT USED FOR UNKNOWN INDICATION
     Route: 048
  14. FLOVENT [Concomitant]
     Indication: PRODUCT USED FOR UNKNOWN INDICATION
     Dosage: DRUG ROUTE: INHALATION
  15. ATARAX                             /00058401/ [Concomitant]
     Indication: PRODUCT USED FOR UNKNOWN INDICATION
     Route: 048
  16. NASONEX [Concomitant]
     Indication: PRODUCT USED FOR UNKNOWN INDICATION
     Route: 045
  17. SINGULAIR [Concomitant]
     Indication: PRODUCT USED FOR UNKNOWN INDICATION
     Route: 048
  18. PREVACID [Concomitant]
     Indication: PRODUCT USED FOR UNKNOWN INDICATION
     Route: 048
  19. PHENERGAN                          /00033001/ [Concomitant]
     Indication: PRODUCT USED FOR UNKNOWN INDICATION
     Route: 048
     Dates: start: 20110607
  20. TOPAMAX [Concomitant]
     Indication: PRODUCT USED FOR UNKNOWN INDICATION
     Route: 048
     Dates: start: 20110606
  21. RELPAX [Concomitant]
     Indication: MIGRAINE
     Route: 048
     Dates: start: 20110606
  22. VICODIN [Concomitant]
     Indication: PRODUCT USED FOR UNKNOWN INDICATION
     Route: 048
  23. LIDODERM [Concomitant]
     Indication: BACK PAIN
     Route: 061
  24. MAXAIR [Concomitant]
     Indication: WHEEZING
  25. RANITIDINE [Concomitant]
     Indication: PREMEDICATION
     Route: 048
  26. MAXALT                             /01406501/ [Concomitant]
     Indication: PRODUCT USED FOR UNKNOWN INDICATION
     Route: 048
  27. SENOKOT                            /00142201/ [Concomitant]
     Indication: PRODUCT USED FOR UNKNOWN INDICATION
     Route: 048
     Dates: end: 20110607
  28. TYLENOL                            /00020001/ [Concomitant]
     Indication: PRODUCT USED FOR UNKNOWN INDICATION
     Route: 048
     Dates: end: 20110607
  29. PROTONIX [Concomitant]
     Indication: PRODUCT USED FOR UNKNOWN INDICATION
     Route: 048
     Dates: start: 20110607, end: 20110607

REACTIONS (1)
  - Dehydration [Recovered/Resolved]
